FAERS Safety Report 7245977-4 (Version None)
Quarter: 2011Q1

REPORT INFORMATION
  Report Type: 
  Country: None (occurrence: None)
  Receive Date: 20110126
  Receipt Date: 20110114
  Transmission Date: 20110831
  Serious: Yes (Other)
  Sender: FDA-Public Use
  Company Number: PHHY2011BR03728

PATIENT
  Sex: Male

DRUGS (1)
  1. DIOVAN HCT [Suspect]
     Dosage: 160MG VALSARTAN AND 12.5MG HYDROCHLOROTHIAZIDE

REACTIONS (2)
  - HYPERTENSION [None]
  - BLOOD PRESSURE INADEQUATELY CONTROLLED [None]
